FAERS Safety Report 7280090 (Version 3)
Quarter: 2013Q1

REPORT INFORMATION
  Report Type: Spontaneous
  Country: US (occurrence: None)
  Receive Date: 20100128
  Receipt Date: 20130222
  Transmission Date: 20140127
  Serious: Yes (Other)
  Sender: FDA-Public Use
  Company Number: 2010AP000091

PATIENT
  Age: 18 Year
  Sex: 0

DRUGS (2)
  1. DIVALPROEX SODIUM DELAYED-RELEASE TABLETS [Suspect]
  2. LEVETIRACETAM TABLETS [Suspect]

REACTIONS (2)
  - Iron overload [None]
  - Convulsion [None]
